FAERS Safety Report 5813025-6 (Version None)
Quarter: 2008Q3

REPORT INFORMATION
  Report Type: 
  Country: None (occurrence: None)
  Receive Date: 20080717
  Receipt Date: 20071030
  Transmission Date: 20090109
  Serious: No
  Sender: FDA-Public Use
  Company Number: A0690415A

PATIENT

DRUGS (2)
  1. NICORETTE (MINT) [Suspect]
     Indication: DRUG USE FOR UNKNOWN INDICATION
     Route: 002
  2. NICOTINE [Suspect]
     Route: 062

REACTIONS (7)
  - AFFECT LABILITY [None]
  - ANGER [None]
  - ANXIETY [None]
  - DRUG INEFFECTIVE [None]
  - IMPATIENCE [None]
  - MUSCLE FATIGUE [None]
  - PAIN IN JAW [None]
